FAERS Safety Report 5782389-4 (Version None)
Quarter: 2008Q2

REPORT INFORMATION
  Report Type: 
  Country: None (occurrence: None)
  Receive Date: 20080623
  Receipt Date: 20071115
  Transmission Date: 20081010
  Serious: No
  Sender: FDA-Public Use
  Company Number: US-AMGEN-US248777

PATIENT
  Sex: Male
  Weight: 73.5 kg

DRUGS (15)
  1. ARANESP [Suspect]
     Indication: MYELODYSPLASTIC SYNDROME
     Route: 058
     Dates: start: 20050408
  2. LOPRESSOR [Concomitant]
     Route: 065
  3. FOLIC ACID [Concomitant]
     Route: 065
  4. SYNTHROID [Concomitant]
     Route: 065
  5. PREDNISONE TAB [Concomitant]
     Route: 065
  6. ZYRTEC [Concomitant]
     Route: 065
  7. DIAMOX SRC [Concomitant]
     Route: 065
  8. ALPHAGAN [Concomitant]
     Route: 065
  9. COSOPT [Concomitant]
     Route: 065
  10. LUMIGAN [Concomitant]
     Route: 065
  11. VITAMIN D [Concomitant]
     Route: 065
  12. VITAMIN B6 [Concomitant]
     Route: 065
  13. VITAMIN CAP [Concomitant]
     Route: 065
  14. FLAX SEED OIL [Concomitant]
     Route: 065
  15. VITAMIN B-12 [Concomitant]
     Route: 065
     Dates: start: 20070927

REACTIONS (6)
  - ABNORMAL BEHAVIOUR [None]
  - ASTHENIA [None]
  - CONFUSIONAL STATE [None]
  - HAEMOGLOBIN DECREASED [None]
  - INCOHERENT [None]
  - VITAMIN B12 DEFICIENCY [None]
